FAERS Safety Report 6450482-9 (Version None)
Quarter: 2009Q4

REPORT INFORMATION
  Report Type: 
  Country: None (occurrence: None)
  Receive Date: 20091123
  Receipt Date: 20091117
  Transmission Date: 20100525
  Serious: Yes (Other)
  Sender: FDA-Public Use
  Company Number: US-BRISTOL-MYERS SQUIBB COMPANY-14864128

PATIENT
  Age: 75 Year
  Sex: Female

DRUGS (8)
  1. COUMADIN [Suspect]
  2. LISINOPRIL [Suspect]
  3. LASIX [Suspect]
     Indication: DIURETIC THERAPY
     Dosage: TABS
     Route: 048
  4. LASIX [Suspect]
     Indication: SWELLING
     Dosage: TABS
     Route: 048
  5. LIPITOR [Suspect]
  6. PREMARIN [Suspect]
  7. CARVEDILOL [Suspect]
  8. LOVENOX [Suspect]

REACTIONS (3)
  - ATRIAL FIBRILLATION [None]
  - CONTUSION [None]
  - HAEMATOMA [None]
